FAERS Safety Report 5701867-7 (Version None)
Quarter: 2008Q2

REPORT INFORMATION
  Report Type: 
  Country: None (occurrence: None)
  Receive Date: 20080411
  Receipt Date: 20080331
  Transmission Date: 20081010
  Serious: Yes (Life-Threatening, Other)
  Sender: FDA-Public Use
  Company Number: GB-SOLVAY-00307033266

PATIENT
  Age: 61 Year
  Sex: Male
  Weight: 93 kg

DRUGS (1)
  1. TESTOGEL [Suspect]
     Indication: PRIMARY HYPOGONADISM
     Dosage: DAILY DOSE: 5 GRAM(S)
     Route: 062

REACTIONS (1)
  - BREAST CANCER MALE [None]
